FAERS Safety Report 10280384 (Version 2)
Quarter: 2014Q3

REPORT INFORMATION
  Report Type: Spontaneous
  Country: BR (occurrence: BR)
  Receive Date: 20140707
  Receipt Date: 20140707
  Transmission Date: 20150326
  Serious: Yes (Death, Hospitalization, Other)
  Sender: FDA-Public Use
  Company Number: BR-PFIZER INC-2013267949

PATIENT
  Age: 69 Year
  Sex: Male
  Weight: 67 kg

DRUGS (2)
  1. POTASSIUM IODATE [Concomitant]
     Active Substance: POTASSIUM IODATE
  2. SUTENT [Suspect]
     Active Substance: SUNITINIB MALATE
     Indication: GASTROINTESTINAL STROMAL CANCER
     Dosage: 1 CAPSULE OF 50 MG, DAILY (4 WEEKS ON/ 2 WEEKS OFF)
     Route: 048
     Dates: start: 20130422, end: 20140609

REACTIONS (14)
  - Haematochezia [Unknown]
  - Blood cholesterol abnormal [Unknown]
  - Skin hypertrophy [Not Recovered/Not Resolved]
  - Skin burning sensation [Not Recovered/Not Resolved]
  - Pain [Unknown]
  - Death [Fatal]
  - Skin atrophy [Not Recovered/Not Resolved]
  - Dry skin [Unknown]
  - Pain in extremity [Not Recovered/Not Resolved]
  - Feeling abnormal [Unknown]
  - Dry skin [Not Recovered/Not Resolved]
  - Skin discolouration [Unknown]
  - Diarrhoea [Recovering/Resolving]
  - Skin exfoliation [Unknown]

NARRATIVE: CASE EVENT DATE: 2013
